FAERS Safety Report 19355156 (Version 2)
Quarter: 2022Q4

REPORT INFORMATION
  Report Type: Spontaneous
  Country: US (occurrence: US)
  Receive Date: 20210602
  Receipt Date: 20221226
  Transmission Date: 20230112
  Serious: No
  Sender: FDA-Public Use
  Company Number: US-KYOWAKIRIN-2021BKK008542

PATIENT

DRUGS (4)
  1. CRYSVITA [Suspect]
     Active Substance: BUROSUMAB-TWZA
     Indication: Hereditary hypophosphataemic rickets
     Dosage: (STRENGTH 20 AND 30 MG/ML COMBINED TO ACHIEVE DOSE OF 50 MG)
     Route: 058
     Dates: start: 20190929
  2. CRYSVITA [Suspect]
     Active Substance: BUROSUMAB-TWZA
     Dosage: (STRENGTH 20 AND 30 MG/ML COMBINED TO ACHIEVE DOSE OF 50 MG)
     Route: 058
  3. CRYSVITA [Suspect]
     Active Substance: BUROSUMAB-TWZA
     Indication: Hereditary hypophosphataemic rickets
     Dosage: (STRENGTH 20 AND 30 MG/ML COMBINED TO ACHIEVE DOSE OF 50 MG)
     Route: 058
     Dates: start: 20190929
  4. CRYSVITA [Suspect]
     Active Substance: BUROSUMAB-TWZA
     Dosage: (STRENGTH 20 AND 30 MG/ML COMBINED TO ACHIEVE DOSE OF 50 MG)
     Route: 058

REACTIONS (2)
  - Knee deformity [Unknown]
  - Impaired healing [Unknown]
